FAERS Safety Report 7021282-6 (Version None)
Quarter: 2010Q3

REPORT INFORMATION
  Report Type: 
  Country: None (occurrence: None)
  Receive Date: 20100929
  Receipt Date: 20100927
  Transmission Date: 20110219
  Serious: Yes (Hospitalization)
  Sender: FDA-Public Use
  Company Number: GR-PFIZER INC-2010122313

PATIENT
  Age: 38 Year
  Sex: Female

DRUGS (2)
  1. MISOPROSTOL [Suspect]
     Indication: OFF LABEL USE
     Dosage: 800 UG, SINGLE
     Route: 067
  2. MISOPROSTOL [Suspect]
     Indication: ABORTION INDUCED
     Dosage: 200 UG, SINGLE
     Route: 048

REACTIONS (1)
  - SEPTIC SHOCK [None]
